FAERS Safety Report 20603572 (Version 1)
Quarter: 2022Q1

REPORT INFORMATION
  Report Type: Spontaneous
  Country: PL (occurrence: PL)
  Receive Date: 20220316
  Receipt Date: 20220316
  Transmission Date: 20220423
  Serious: Yes (Death, Other)
  Sender: FDA-Public Use
  Company Number: None

PATIENT
  Age: 4 Day
  Sex: Male
  Weight: 2 kg

DRUGS (2)
  1. SYNAGIS [Suspect]
     Active Substance: PALIVIZUMAB
     Indication: Premature baby
     Dosage: THE DRUG HAS NOT BEEN USED IN THE PAST. FIRST DOSE.
     Route: 030
     Dates: start: 20220210, end: 20220210
  2. BAXTER [Concomitant]
     Indication: Hypoglycaemia neonatal
     Dosage: CONTINUOUS INFUSION 5 MG/KG/MINUTE
     Route: 041
     Dates: start: 20220209, end: 20220211

REACTIONS (1)
  - Necrotising enterocolitis neonatal [Fatal]

NARRATIVE: CASE EVENT DATE: 20220211
